FAERS Safety Report 13879928 (Version 1)
Quarter: 2017Q3

REPORT INFORMATION
  Report Type: Not Available
  Country: US (occurrence: US)
  Receive Date: 20170818
  Receipt Date: 20170818
  Transmission Date: 20171127
  Serious: No
  Sender: FDA-Public Use
  Company Number: US-3M-2016-US-007588

PATIENT
  Age: 73 Year
  Sex: Male

DRUGS (2)
  1. PERIDEX [Suspect]
     Active Substance: CHLORHEXIDINE GLUCONATE
     Dosage: RINSED MOUTH TWICE DAILY
     Route: 048
     Dates: start: 20160812, end: 20160826
  2. CRESTOR [Concomitant]
     Active Substance: ROSUVASTATIN CALCIUM

REACTIONS (1)
  - Tongue discolouration [Not Recovered/Not Resolved]
